FAERS Safety Report 24538193 (Version 1)
Quarter: 2024Q4

REPORT INFORMATION
  Report Type: Spontaneous
  Country: US (occurrence: US)
  Receive Date: 20241023
  Receipt Date: 20241023
  Transmission Date: 20250115
  Serious: Yes (Other)
  Sender: AMGEN
  Company Number: US-AMGEN-USASP2024208495

PATIENT
  Age: 45 Year
  Sex: Female

DRUGS (4)
  1. PREDNISONE [Suspect]
     Active Substance: PREDNISONE
     Indication: Eczema
     Dosage: 10-DAY COURSE
     Route: 048
  2. PREDNISONE [Suspect]
     Active Substance: PREDNISONE
     Dosage: 60 MILLIGRAM
     Route: 048
  3. SECUKINUMAB [Concomitant]
     Active Substance: SECUKINUMAB
  4. CLOBETASOL [Concomitant]
     Active Substance: CLOBETASOL
     Route: 061

REACTIONS (6)
  - Staphylococcal sepsis [Unknown]
  - Dermatitis atopic [Unknown]
  - Eczema [Unknown]
  - COVID-19 [Unknown]
  - Psoriasis [Unknown]
  - Off label use [Unknown]
